FAERS Safety Report 21387115 (Version 2)
Quarter: 2022Q4

REPORT INFORMATION
  Report Type: Report from Study
  Country: CA (occurrence: CA)
  Receive Date: 20220928
  Receipt Date: 20221005
  Transmission Date: 20230113
  Serious: Yes (Death, Other)
  Sender: FDA-Public Use
  Company Number: CA-MYLANLABS-2022M1095302

PATIENT
  Age: 73 Year
  Sex: Female
  Weight: 99.34 kg

DRUGS (1)
  1. OGIVRI [Suspect]
     Active Substance: TRASTUZUMAB-DKST
     Indication: Endometrial cancer metastatic
     Dosage: 440 MILLIGRAM, Q3W (440/3WEEKS)
     Route: 042
     Dates: start: 20220429

REACTIONS (2)
  - Death [Fatal]
  - Off label use [Unknown]

NARRATIVE: CASE EVENT DATE: 20220429
